FAERS Safety Report 8488088-2 (Version None)
Quarter: 2012Q3

REPORT INFORMATION
  Report Type: 
  Country: None (occurrence: None)
  Receive Date: 20120705
  Receipt Date: 20120629
  Transmission Date: 20120928
  Serious: Yes (Other)
  Sender: FDA-Public Use
  Company Number: US-PFIZER INC-2012141657

PATIENT
  Sex: Female
  Weight: 61 kg

DRUGS (10)
  1. PREMARIN [Suspect]
     Dosage: 0.625 MG, DAILY
  2. LYRICA [Suspect]
     Indication: HERPES ZOSTER
     Dosage: 75 MG, 2X/DAY
     Dates: start: 20111001
  3. ATENOLOL [Concomitant]
     Indication: HEADACHE
     Dosage: 50 MG, DAILY
  4. ATENOLOL [Concomitant]
     Indication: HYPERTENSION
  5. PREMARIN [Suspect]
     Dosage: 0.9 MG, DAILY
  6. PREMARIN [Suspect]
     Dosage: 0.3 MG, DAILY
  7. PREMARIN [Suspect]
     Indication: HOT FLUSH
     Dosage: 1.25 MG, DAILY
     Dates: start: 19900101
  8. LYRICA [Suspect]
     Dosage: 50 MG, DAILY
     Dates: end: 20120501
  9. LYRICA [Suspect]
     Indication: FIBROMYALGIA
     Dosage: 25 MG, 2X/DAY
  10. OXYCODONE HYDROCHLORIDE [Suspect]
     Indication: HERPES ZOSTER
     Dosage: 5 MG, 2X/DAY
     Dates: start: 20111001, end: 20110101

REACTIONS (9)
  - HERPES ZOSTER [None]
  - BLOOD CHOLESTEROL INCREASED [None]
  - DRY EYE [None]
  - VISION BLURRED [None]
  - FEELING HOT [None]
  - FIBROMYALGIA [None]
  - FEELING ABNORMAL [None]
  - HOT FLUSH [None]
  - ANORGASMIA [None]
